FAERS Safety Report 14415795 (Version 2)
Quarter: 2018Q1

REPORT INFORMATION
  Report Type: Spontaneous
  Country: BR (occurrence: BR)
  Receive Date: 20180122
  Receipt Date: 20180302
  Transmission Date: 20180509
  Serious: Yes (Death, Life-Threatening, Other)
  Sender: FDA-Public Use
  Company Number: BR-ABBVIE-18K-020-2230187-00

PATIENT
  Age: 16 Year
  Sex: Female
  Weight: 49.2 kg

DRUGS (2)
  1. HUMIRA [Suspect]
     Active Substance: ADALIMUMAB
     Indication: CROHN^S DISEASE
     Route: 058
     Dates: start: 20160906, end: 20161208
  2. 6-MERCAPTOPURINE [Concomitant]
     Active Substance: MERCAPTOPURINE
     Indication: CROHN^S DISEASE
     Dates: start: 200806

REACTIONS (12)
  - Peritoneal fluid analysis abnormal [Unknown]
  - Splenomegaly [Unknown]
  - Histoplasmosis [Fatal]
  - Haemorrhage intracranial [Fatal]
  - Crohn^s disease [Fatal]
  - Abdominal lymphadenopathy [Unknown]
  - Lower gastrointestinal haemorrhage [Fatal]
  - Neurogenic shock [Fatal]
  - Necrosis [Unknown]
  - Hepatomegaly [Unknown]
  - Histiocytosis haematophagic [Fatal]
  - Haemorrhagic stroke [Fatal]

NARRATIVE: CASE EVENT DATE: 20170109
